FAERS Safety Report 8923915 (Version 2)
Quarter: 2013Q1

REPORT INFORMATION
  Report Type: Spontaneous
  Country: None (occurrence: None)
  Receive Date: 20121116
  Receipt Date: 20121205
  Transmission Date: 20140127
  Serious: No
  Sender: FDA-Public Use
  Company Number: 2523595-2012-00069

PATIENT
  Sex: 0

DRUGS (1)
  1. PREDNISONE [Suspect]

REACTIONS (1)
  - Serum sickness [None]
